FAERS Safety Report 7811170-7 (Version None)
Quarter: 2011Q4

REPORT INFORMATION
  Report Type: 
  Country: None (occurrence: None)
  Receive Date: 20111013
  Receipt Date: 20111013
  Transmission Date: 20120403
  Serious: Yes (Other)
  Sender: FDA-Public Use
  Company Number: PHHO2010US16619

PATIENT
  Sex: Female
  Weight: 53 kg

DRUGS (1)
  1. GILENYA [Suspect]
     Indication: MULTIPLE SCLEROSIS
     Dosage: 0.5 MG, UNK
     Route: 048
     Dates: start: 20081117, end: 20100928

REACTIONS (3)
  - SQUAMOUS CELL CARCINOMA OF SKIN [None]
  - SKIN LESION [None]
  - MALIGNANT TUMOUR EXCISION [None]
